FAERS Safety Report 19121074 (Version 1)
Quarter: 2021Q2

REPORT INFORMATION
  Report Type: Spontaneous
  Country: CA (occurrence: CA)
  Receive Date: 20210412
  Receipt Date: 20210412
  Transmission Date: 20210717
  Serious: Yes (Disabling)
  Sender: FDA-Public Use
  Company Number: NVSC2021CA075582

PATIENT
  Age: 82 Year
  Sex: Male
  Weight: 113.37 kg

DRUGS (1)
  1. SANDOZ TAMSULOSIN CR [Suspect]
     Active Substance: TAMSULOSIN
     Indication: BENIGN PROSTATIC HYPERPLASIA
     Dosage: 0.4 MG
     Route: 065

REACTIONS (2)
  - Penile swelling [Recovered/Resolved]
  - Dyspnoea [Recovered/Resolved]
